FAERS Safety Report 6572321-8 (Version None)
Quarter: 2010Q1

REPORT INFORMATION
  Report Type: 
  Country: None (occurrence: None)
  Receive Date: 20100201
  Receipt Date: 20100128
  Transmission Date: 20100710
  Serious: Yes (Other)
  Sender: FDA-Public Use
  Company Number: 2009NI0253

PATIENT
  Age: 45 Year
  Sex: Female
  Weight: 68.0396 kg

DRUGS (3)
  1. NITROLINGUAL PUMPSPRAY [Suspect]
     Indication: CHEST PAIN
     Dosage: 1 SPRAY, AS NEEDED (PRIOR TO 2005-ONGOING)
     Dates: start: 20040101
  2. NITROLINGUAL PUMPSPRAY [Suspect]
     Indication: OESOPHAGEAL SPASM
     Dosage: 1 SPRAY, AS NEEDED (PRIOR TO 2005-ONGOING)
     Dates: start: 20040101
  3. CLONIDINE [Concomitant]

REACTIONS (6)
  - CHEST PAIN [None]
  - COUGH [None]
  - DISEASE RECURRENCE [None]
  - DRUG INEFFECTIVE [None]
  - DYSGEUSIA [None]
  - PRODUCT QUALITY ISSUE [None]
